FAERS Safety Report 7249700-9 (Version None)
Quarter: 2011Q1

REPORT INFORMATION
  Report Type: 
  Country: None (occurrence: None)
  Receive Date: 20110128
  Receipt Date: 20110120
  Transmission Date: 20110831
  Serious: Yes (Other)
  Sender: FDA-Public Use
  Company Number: GB-SANOFI-AVENTIS-2011SA004181

PATIENT
  Age: 73 Year

DRUGS (11)
  1. FLUOROURACIL [Suspect]
  2. FOLINIC ACID [Suspect]
  3. BEVACIZUMAB [Suspect]
  4. FOLINIC ACID [Suspect]
  5. FLUOROURACIL [Suspect]
  6. SIMVASTATIN [Concomitant]
  7. OXALIPLATIN [Suspect]
  8. BEVACIZUMAB [Suspect]
     Dates: start: 20100713, end: 20100713
  9. OXALIPLATIN [Suspect]
  10. ASASANTIN [Concomitant]
     Dates: start: 20090601
  11. METFORMIN [Concomitant]

REACTIONS (1)
  - TRANSIENT ISCHAEMIC ATTACK [None]
